FAERS Safety Report 14999612 (Version 1)
Quarter: 2018Q2

REPORT INFORMATION
  Report Type: Spontaneous
  Country: US (occurrence: US)
  Receive Date: 20180522
  Receipt Date: 20180522
  Transmission Date: 20180711
  Serious: Yes (Life-Threatening, Hospitalization, Disabling, Other)
  Sender: FDA-Public Use
  Company Number: None

PATIENT
  Age: 28 Year
  Sex: Male
  Weight: 63 kg

DRUGS (12)
  1. PREDNISONE. [Concomitant]
     Active Substance: PREDNISONE
  2. DOCUSATE [Concomitant]
     Active Substance: DOCUSATE
  3. COUMADIN [Concomitant]
     Active Substance: WARFARIN SODIUM
  4. INFLIXIMAB [Suspect]
     Active Substance: INFLIXIMAB
     Indication: CROHN^S DISEASE
     Route: 042
     Dates: start: 20170918, end: 20171002
  5. BUDESONIDE. [Concomitant]
     Active Substance: BUDESONIDE
  6. SENNA [Concomitant]
     Active Substance: SENNA LEAF\SENNOSIDES\SENNOSIDES A AND B
  7. BACLOFEN. [Concomitant]
     Active Substance: BACLOFEN
  8. IRON [Concomitant]
     Active Substance: IRON
  9. APRISO [Concomitant]
     Active Substance: MESALAMINE
  10. LYRICA [Concomitant]
     Active Substance: PREGABALIN
  11. ZOLOFT [Concomitant]
     Active Substance: SERTRALINE HYDROCHLORIDE
  12. VITAMIN D3 [Concomitant]
     Active Substance: CHOLECALCIFEROL

REACTIONS (9)
  - Loss of consciousness [None]
  - Compartment syndrome [None]
  - Renal failure [None]
  - Dialysis [None]
  - Pyrexia [None]
  - Fall [None]
  - Peroneal nerve palsy [None]
  - Guillain-Barre syndrome [None]
  - Rhabdomyolysis [None]

NARRATIVE: CASE EVENT DATE: 20171012
